FAERS Safety Report 10154928 (Version 1)
Quarter: 2014Q2

REPORT INFORMATION
  Report Type: Spontaneous
  Country: US (occurrence: None)
  Receive Date: 20140505
  Receipt Date: 20140505
  Transmission Date: 20141212
  Serious: No
  Sender: FDA-Public Use
  Company Number: None

PATIENT
  Age: 71 Year
  Sex: Male

DRUGS (6)
  1. ZYTIGA [Suspect]
     Route: 048
     Dates: start: 20120629, end: 20140503
  2. ALBUTEROL [Concomitant]
  3. SYMBICORT [Concomitant]
  4. CLARITIN [Concomitant]
  5. LIPITOR [Concomitant]
  6. PREDNISONE [Concomitant]

REACTIONS (2)
  - Peripheral swelling [None]
  - Urticaria [None]
